FAERS Safety Report 4378225-3 (Version None)
Quarter: 2004Q2

REPORT INFORMATION
  Report Type: 
  Country: None (occurrence: None)
  Receive Date: 20040601
  Receipt Date: 20040224
  Transmission Date: 20050107
  Serious: No
  Sender: FDA-Public Use
  Company Number: WAES 0402USA01797

PATIENT
  Age: 74 Year
  Sex: Male

DRUGS (2)
  1. ZETIA [Suspect]
     Dosage: 10 MG DAILY PO
     Route: 048
     Dates: start: 20030225, end: 20040219
  2. NIASPAN [Concomitant]

REACTIONS (2)
  - BACK PAIN [None]
  - PHOTOPSIA [None]
